FAERS Safety Report 19832473 (Version 1)
Quarter: 2021Q3

REPORT INFORMATION
  Report Type: Spontaneous
  Country: US (occurrence: US)
  Receive Date: 20210915
  Receipt Date: 20210915
  Transmission Date: 20211014
  Serious: Yes (Death, Life-Threatening, Other)
  Sender: FDA-Public Use
  Company Number: US-MICRO LABS LIMITED-ML2021-02154

PATIENT
  Age: 14 Year
  Sex: Female

DRUGS (3)
  1. AMLODIPINE [Suspect]
     Active Substance: AMLODIPINE BESYLATE
     Route: 048
  2. FENOFIBRATE. [Suspect]
     Active Substance: FENOFIBRATE
     Route: 048
  3. COLCHICINE. [Suspect]
     Active Substance: COLCHICINE
     Route: 048

REACTIONS (6)
  - Completed suicide [Fatal]
  - Hepatic function abnormal [Fatal]
  - Hypotension [Fatal]
  - Toxicity to various agents [Fatal]
  - Cardiac arrest [Fatal]
  - Renal impairment [Fatal]
